FAERS Safety Report 9455801 (Version 1)
Quarter: 2013Q3

REPORT INFORMATION
  Report Type: Spontaneous
  Country: NZ (occurrence: NZ)
  Receive Date: 20130813
  Receipt Date: 20130813
  Transmission Date: 20140515
  Serious: Yes (Other)
  Sender: FDA-Public Use
  Company Number: NZ-SANOFI-AVENTIS-2013SA078785

PATIENT
  Age: 51 Year
  Sex: Female

DRUGS (2)
  1. LEFLUNOMIDE [Suspect]
     Indication: PRODUCT USED FOR UNKNOWN INDICATION
     Route: 048
  2. HIRUDOID [Concomitant]
     Route: 061

REACTIONS (5)
  - Hepatocellular injury [Unknown]
  - Hyperbilirubinaemia [Unknown]
  - Diarrhoea [Unknown]
  - Headache [Unknown]
  - Vomiting [Unknown]
